FAERS Safety Report 24700624 (Version 1)
Quarter: 2024Q4

REPORT INFORMATION
  Report Type: Spontaneous
  Country: CN (occurrence: CN)
  Receive Date: 20241205
  Receipt Date: 20241205
  Transmission Date: 20250115
  Serious: Yes (Life-Threatening, Hospitalization)
  Sender: ACCORD
  Company Number: CN-MLMSERVICE-20241119-PI261116-00232-1

PATIENT
  Age: 4 Decade
  Sex: Male

DRUGS (3)
  1. MYCOPHENOLATE MOFETIL [Suspect]
     Active Substance: MYCOPHENOLATE MOFETIL
     Indication: Immunosuppressant drug therapy
     Dosage: LONG TERM
     Dates: start: 201508
  2. TACROLIMUS [Suspect]
     Active Substance: TACROLIMUS
     Indication: Immunosuppressant drug therapy
     Dosage: LONG TERM
     Dates: start: 201508
  3. PREDNISONE [Suspect]
     Active Substance: PREDNISONE
     Indication: Immunosuppressant drug therapy
     Dosage: LONG TERM
     Dates: start: 201508

REACTIONS (3)
  - Post transplant lymphoproliferative disorder [Recovered/Resolved]
  - Pharyngeal haemorrhage [Recovered/Resolved]
  - Pharyngeal neoplasm [Recovered/Resolved]

NARRATIVE: CASE EVENT DATE: 20150101
